FAERS Safety Report 16858020 (Version 2)
Quarter: 2021Q4

REPORT INFORMATION
  Report Type: Report from Study
  Country: US (occurrence: US)
  Receive Date: 20190926
  Receipt Date: 20211216
  Transmission Date: 20220303
  Serious: No
  Sender: FDA-Public Use
  Company Number: PHEH2019US039694

PATIENT
  Sex: Male

DRUGS (1)
  1. COSENTYX [Suspect]
     Active Substance: SECUKINUMAB
     Indication: Product used for unknown indication
     Dosage: 150 MG, UNK
     Route: 065

REACTIONS (4)
  - Arthritis [Unknown]
  - Pain in extremity [Unknown]
  - Psoriasis [Unknown]
  - Product dose omission issue [Unknown]
